FAERS Safety Report 16535443 (Version 3)
Quarter: 2019Q4

REPORT INFORMATION
  Report Type: Spontaneous
  Country: US (occurrence: US)
  Receive Date: 20190705
  Receipt Date: 20191002
  Transmission Date: 20200122
  Serious: No
  Sender: FDA-Public Use
  Company Number: US-GW PHARMA-201906USGW2147

PATIENT

DRUGS (5)
  1. LORAZEPAM. [Concomitant]
     Active Substance: LORAZEPAM
     Indication: VAGAL NERVE STIMULATOR IMPLANTATION
     Dosage: 1 MILLIGRAM, BID PRN
     Route: 065
  2. LAMOTRIGINE. [Concomitant]
     Active Substance: LAMOTRIGINE
     Indication: PRODUCT USED FOR UNKNOWN INDICATION
     Dosage: 200 MILLIGRAM, BID
     Route: 065
  3. KEPPRA [Concomitant]
     Active Substance: LEVETIRACETAM
     Indication: PRODUCT USED FOR UNKNOWN INDICATION
     Dosage: 500MG, 7 DOSAGE FORM, QD (3 TAB AM AND 4 TAB PM)
     Route: 065
  4. EPIDIOLEX [Suspect]
     Active Substance: CANNABIDIOL
     Indication: LENNOX-GASTAUT SYNDROME
     Dosage: 4.9 MG/KG, 75 MILLIGRAM, BID
     Route: 048
     Dates: start: 20190416
  5. EPIDIOLEX [Suspect]
     Active Substance: CANNABIDIOL
     Dosage: 4.9 MG/KG, 150 MILLIGRAM, BID
     Route: 048
     Dates: start: 201904, end: 20190430

REACTIONS (4)
  - Pruritus [Recovered/Resolved]
  - Seizure [Recovered/Resolved]
  - Urticaria [Recovered/Resolved]
  - Agitation [Unknown]

NARRATIVE: CASE EVENT DATE: 201904
